FAERS Safety Report 9667854 (Version 1)
Quarter: 2013Q4

REPORT INFORMATION
  Report Type: Report from Study
  Country: US (occurrence: US)
  Receive Date: 20131104
  Receipt Date: 20131104
  Transmission Date: 20140711
  Serious: No
  Sender: FDA-Public Use
  Company Number: US-009507513-1310USA010460

PATIENT
  Age: 38 Year
  Sex: 0
  Weight: 96.15 kg

DRUGS (1)
  1. IMPLANON [Suspect]
     Dosage: UNK
     Route: 059
     Dates: start: 20111025, end: 20131022

REACTIONS (2)
  - Menstruation irregular [Unknown]
  - Medical device removal [Unknown]
